FAERS Safety Report 5047010-1 (Version None)
Quarter: 2006Q2

REPORT INFORMATION
  Report Type: 
  Country: None (occurrence: None)
  Receive Date: 20060630
  Receipt Date: 20060620
  Transmission Date: 20061013
  Serious: Yes (Hospitalization)
  Sender: FDA-Public Use
  Company Number: 2006077861

PATIENT
  Age: 85 Year
  Sex: Male

DRUGS (3)
  1. ZYVOX [Suspect]
     Dosage: 600 MG
     Dates: start: 20060616, end: 20060618
  2. PLAVIX [Concomitant]
  3. LOVENOX [Concomitant]

REACTIONS (2)
  - ARRHYTHMIA [None]
  - CONFUSIONAL STATE [None]
